FAERS Safety Report 11927152 (Version 1)
Quarter: 2016Q1

REPORT INFORMATION
  Report Type: Spontaneous
  Country: US (occurrence: None)
  Receive Date: 20160115
  Receipt Date: 20160115
  Transmission Date: 20160526
  Serious: No
  Sender: FDA-Public Use
  Company Number: None

PATIENT
  Age: 59 Year
  Sex: Female
  Weight: 70.31 kg

DRUGS (1)
  1. CLINDAMYCIN [Suspect]
     Active Substance: CLINDAMYCIN\CLINDAMYCIN PHOSPHATE
     Indication: CYST
     Dosage: CLINDAMYCIN, FOUR TIMES DAILY, INTO A VEIN
     Dates: start: 20150606, end: 20150616

REACTIONS (2)
  - Clostridium difficile infection [None]
  - Rash [None]

NARRATIVE: CASE EVENT DATE: 20150606
